FAERS Safety Report 8964344 (Version 1)
Quarter: 2012Q4

REPORT INFORMATION
  Report Type: 
  Country: US (occurrence: US)
  Receive Date: 20121214
  Receipt Date: 20121214
  Transmission Date: 20130627
  Serious: No
  Sender: FDA-Public Use
  Company Number: US-GLAXOSMITHKLINE-A0972640A

PATIENT
  Sex: Male

DRUGS (2)
  1. AVODART [Suspect]
     Indication: BENIGN PROSTATIC HYPERPLASIA
     Dosage: .5MG Per day
     Route: 065
     Dates: start: 20111111
  2. HEART MEDICATION [Suspect]

REACTIONS (3)
  - Overdose [Unknown]
  - Urine output decreased [Not Recovered/Not Resolved]
  - Urinary retention [Unknown]
